FAERS Safety Report 24287744 (Version 1)
Quarter: 2024Q3

REPORT INFORMATION
  Report Type: Spontaneous
  Country: US (occurrence: None)
  Receive Date: 20240905
  Receipt Date: 20240905
  Transmission Date: 20241017
  Serious: No
  Sender: Public
  Company Number: None

PATIENT
  Sex: 0

DRUGS (1)
  1. PRAVASTATIN [Suspect]
     Active Substance: PRAVASTATIN

REACTIONS (7)
  - Treatment failure [None]
  - Urinary tract infection [None]
  - Fungal infection [None]
  - Nausea [None]
  - Abdominal pain [None]
  - Dizziness [None]
  - Dizziness [None]
